FAERS Safety Report 14350968 (Version 1)
Quarter: 2018Q1

REPORT INFORMATION
  Report Type: Not Available
  Country: None (occurrence: FR)
  Receive Date: 20180104
  Receipt Date: 20180104
  Transmission Date: 20180509
  Serious: Yes (Life-Threatening, Hospitalization)
  Sender: FDA-Public Use
  Company Number: FR-GALEN LIMITED-AE-2018-0001

PATIENT
  Age: 66 Year
  Sex: Male
  Weight: 69 kg

DRUGS (10)
  1. HYDREA [Suspect]
     Active Substance: HYDROXYUREA
     Indication: ESSENTIAL THROMBOCYTHAEMIA
     Route: 048
     Dates: start: 200507, end: 201603
  2. ESIDREX 25 MG, COMPRIM? [Concomitant]
     Route: 048
  3. CYTARABINE. [Suspect]
     Active Substance: CYTARABINE
     Indication: ACUTE MYELOID LEUKAEMIA
     Route: 041
     Dates: start: 20160308, end: 20160315
  4. HYDREA [Suspect]
     Active Substance: HYDROXYUREA
     Route: 048
     Dates: start: 200507, end: 201603
  5. MECIR L.P. 0,4 MG, COMPRIM? PELLICUL? ? LIB?RATION PROLONG?E [Concomitant]
     Active Substance: TAMSULOSIN HYDROCHLORIDE
     Route: 048
  6. AMLOR 5 MG, G?LULE [Concomitant]
     Route: 048
  7. ODRIK 2 MG, G?LULE [Concomitant]
     Route: 048
  8. DAUNORUBICIN [Suspect]
     Active Substance: DAUNORUBICIN
     Indication: ACUTE MYELOID LEUKAEMIA
     Route: 041
     Dates: start: 20160311, end: 20160313
  9. TAHOR [Concomitant]
     Active Substance: ATORVASTATIN CALCIUM
     Route: 048
  10. KARDEGIC 160 MG, POUDRE POUR SOLUTION BUVABLE EN SACHET [Concomitant]
     Route: 048

REACTIONS (1)
  - Tumour lysis syndrome [Recovering/Resolving]

NARRATIVE: CASE EVENT DATE: 20160309
